FAERS Safety Report 9006503 (Version 2)
Quarter: 2013Q1

REPORT INFORMATION
  Report Type: Spontaneous
  Country: US (occurrence: US)
  Receive Date: 20130110
  Receipt Date: 20130117
  Transmission Date: 20140127
  Serious: No
  Sender: FDA-Public Use
  Company Number: US-PFIZER INC-2013007717

PATIENT
  Age: 74 Year
  Sex: Female
  Weight: 56.69 kg

DRUGS (2)
  1. FLECTOR [Suspect]
     Indication: INTERVERTEBRAL DISC PROTRUSION
     Dosage: 1 DF, 1X/DAY
     Dates: start: 20120926, end: 20120926
  2. FLECTOR [Suspect]
     Dosage: 1 DF, 1X/DAY
     Dates: start: 20120928, end: 20120928

REACTIONS (5)
  - Malaise [Recovered/Resolved]
  - Vomiting [Recovered/Resolved]
  - Diarrhoea [Recovered/Resolved]
  - Nausea [Recovered/Resolved]
  - Off label use [Unknown]
